FAERS Safety Report 8779091 (Version 3)
Quarter: 2012Q4

REPORT INFORMATION
  Report Type: 
  Country: US (occurrence: US)
  Receive Date: 20120912
  Receipt Date: 20121210
  Transmission Date: 20130627
  Serious: Yes (Hospitalization)
  Sender: FDA-Public Use
  Company Number: US-BIOGENIDEC-2012BI034283

PATIENT
  Age: 33 Year
  Sex: Female

DRUGS (2)
  1. TYSABRI [Suspect]
     Indication: MULTIPLE SCLEROSIS
     Route: 042
     Dates: start: 20071217, end: 20090714
  2. TYSABRI [Suspect]
     Indication: MULTIPLE SCLEROSIS
     Route: 042
     Dates: start: 20091210

REACTIONS (7)
  - Septic shock [Recovered/Resolved]
  - Renal failure acute [Recovered/Resolved]
  - Multiple sclerosis relapse [Unknown]
  - Urosepsis [Recovered/Resolved]
  - Clostridium difficile infection [Recovered/Resolved]
  - Neurogenic bladder [Unknown]
  - Urinary tract infection [Recovered/Resolved]
